FAERS Safety Report 6969316-9 (Version None)
Quarter: 2010Q4

REPORT INFORMATION
  Report Type: 
  Country: None (occurrence: None)
  Receive Date: 20100907
  Receipt Date: 20100830
  Transmission Date: 20110411
  Serious: Yes (Death)
  Sender: FDA-Public Use
  Company Number: DK-ELI_LILLY_AND_COMPANY-DK201008008937

PATIENT
  Sex: Female

DRUGS (2)
  1. GEMZAR [Suspect]
     Indication: NEOPLASM MALIGNANT
     Dosage: UNK, UNKNOWN
     Route: 042
     Dates: start: 20070109
  2. GEMZAR [Suspect]
     Dosage: UNK, UNKNOWN
     Route: 042

REACTIONS (13)
  - AGGRESSION [None]
  - ANGER [None]
  - ASTHENIA [None]
  - CARDIAC ARREST [None]
  - DIZZINESS [None]
  - MENTAL DISORDER [None]
  - NAUSEA [None]
  - ORAL PAIN [None]
  - PARAESTHESIA [None]
  - PSYCHOTIC DISORDER [None]
  - RENAL IMPAIRMENT [None]
  - SEPTIC SHOCK [None]
  - VOMITING [None]
